FAERS Safety Report 6480046-2 (Version None)
Quarter: 2009Q4

REPORT INFORMATION
  Report Type: 
  Country: None (occurrence: None)
  Receive Date: 20091202
  Receipt Date: 20091116
  Transmission Date: 20100525
  Serious: Yes (Death)
  Sender: FDA-Public Use
  Company Number: 2009EK003935

PATIENT
  Age: 69 Year
  Sex: Male

DRUGS (1)
  1. RETEPLASE, RECOMBINANT (RETEPLASE, RECOMBINANT) [Suspect]
     Indication: DRUG USE FOR UNKNOWN INDICATION
     Dosage: IV
     Route: 042

REACTIONS (3)
  - INCORRECT DOSE ADMINISTERED [None]
  - MEDICATION ERROR [None]
  - PROTHROMBIN TIME SHORTENED [None]
